FAERS Safety Report 4681202-6 (Version None)
Quarter: 2005Q2

REPORT INFORMATION
  Report Type: 
  Country: None (occurrence: None)
  Receive Date: 20050601
  Receipt Date: 20050524
  Transmission Date: 20051028
  Serious: No
  Sender: FDA-Public Use
  Company Number: S05-USA-02727-01

PATIENT
  Age: 101 Year
  Sex: Male

DRUGS (12)
  1. NAMENDA [Suspect]
     Indication: DEMENTIA
     Dosage: 10 MG BID PO
     Route: 048
     Dates: start: 20040101, end: 20050301
  2. NAMENDA [Suspect]
     Indication: DEMENTIA
     Dosage: 10 MG BID PO
     Route: 048
     Dates: start: 20050301, end: 20050516
  3. NAMENDA [Suspect]
     Indication: DEMENTIA
     Dosage: 15 MG QD PO
     Route: 048
     Dates: start: 20050305, end: 20050301
  4. NAMENDA [Suspect]
     Indication: DEMENTIA
     Dosage: 5 MG QD PO
     Route: 048
     Dates: start: 20040501, end: 20040101
  5. NAMENDA [Suspect]
     Indication: DEMENTIA
     Dosage: 5 MG BID PO
     Route: 048
     Dates: start: 20040101, end: 20040101
  6. NAMENDA [Suspect]
     Indication: DEMENTIA
     Dosage: 15 MG QD PO
     Route: 048
     Dates: start: 20040101, end: 20040101
  7. NAMENDA [Suspect]
     Indication: DEMENTIA
     Dosage: 15 MG QD PO
     Route: 048
     Dates: start: 20050517
  8. LASIX [Concomitant]
  9. K-DUR 10 [Concomitant]
  10. CORDARONE [Concomitant]
  11. PREVACID [Concomitant]
  12. SYNTHROID [Concomitant]

REACTIONS (8)
  - ABNORMAL DREAMS [None]
  - AGITATION [None]
  - BLADDER CANCER [None]
  - CONFUSIONAL STATE [None]
  - HAEMORRHAGE URINARY TRACT [None]
  - NEOPLASM RECURRENCE [None]
  - SLEEP DISORDER [None]
  - URINARY TRACT INFECTION [None]
